FAERS Safety Report 7815075-7 (Version None)
Quarter: 2011Q4

REPORT INFORMATION
  Report Type: 
  Country: None (occurrence: None)
  Receive Date: 20111003
  Receipt Date: 20110927
  Transmission Date: 20120403
  Serious: Yes (Other)
  Sender: FDA-Public Use
  Company Number: 2011027490

PATIENT
  Age: 45 Year
  Sex: Female
  Weight: 108.4097 kg

DRUGS (16)
  1. PULMICORT [Concomitant]
  2. ZETIA [Concomitant]
  3. HIZENTRA [Suspect]
     Indication: SELECTIVE IGG SUBCLASS DEFICIENCY
     Dosage: SEE IMAGE
     Route: 058
     Dates: start: 20110124
  4. HIZENTRA [Suspect]
     Indication: SELECTIVE IGG SUBCLASS DEFICIENCY
     Dosage: SEE IMAGE
     Route: 058
     Dates: start: 20110124
  5. HIZENTRA [Suspect]
     Indication: SELECTIVE IGG SUBCLASS DEFICIENCY
     Dosage: SEE IMAGE
     Route: 058
     Dates: start: 20110918, end: 20110918
  6. SPIRIVA [Concomitant]
  7. SPIRONOLACTONE [Concomitant]
  8. AVAPRO [Concomitant]
  9. AMARYL (GLIMEPRIDINE) [Concomitant]
  10. ZYRTEC [Concomitant]
  11. JANUVIA (DRUG USED IN DIABETES) [Concomitant]
  12. HIZENTRA [Suspect]
  13. PROAIR (PROCATEROL HYDROCHLORIDE) [Concomitant]
  14. FORADIL [Concomitant]
  15. NEXIUM [Concomitant]
  16. HIZENTRA [Suspect]

REACTIONS (5)
  - SINUSITIS [None]
  - HEADACHE [None]
  - INFUSION SITE PRURITUS [None]
  - NAUSEA [None]
  - INFUSION SITE ERYTHEMA [None]
